FAERS Safety Report 4277550-4 (Version None)
Quarter: 2004Q1

REPORT INFORMATION
  Report Type: 
  Country: None (occurrence: None)
  Receive Date: 20040121
  Receipt Date: 20031231
  Transmission Date: 20041129
  Serious: Yes (Hospitalization, Disabling, Other)
  Sender: FDA-Public Use
  Company Number: US_040199722

PATIENT
  Age: 62 Year
  Sex: Male
  Weight: 93 kg

DRUGS (3)
  1. HUMULIN 70/30 [Suspect]
     Dosage: 5 U/2 DAY
  2. HUMULIN R [Suspect]
  3. GLIPIZIDE [Concomitant]

REACTIONS (6)
  - BLINDNESS UNILATERAL [None]
  - BLOOD GLUCOSE INCREASED [None]
  - BLOOD PRESSURE INCREASED [None]
  - EYE REDNESS [None]
  - GLAUCOMA [None]
  - MACULAR DEGENERATION [None]
